FAERS Safety Report 16985988 (Version 1)
Quarter: 2019Q4

REPORT INFORMATION
  Report Type: Spontaneous
  Country: US (occurrence: US)
  Receive Date: 20191031
  Receipt Date: 20191031
  Transmission Date: 20200122
  Serious: No
  Sender: FDA-Public Use
  Company Number: None

PATIENT
  Sex: Male

DRUGS (1)
  1. PREGABALIN 75MG [Suspect]
     Active Substance: PREGABALIN

REACTIONS (3)
  - Dyspnoea [None]
  - Drug hypersensitivity [None]
  - Swelling face [None]
